FAERS Safety Report 13303855 (Version 2)
Quarter: 2017Q2

REPORT INFORMATION
  Report Type: Spontaneous
  Country: FR (occurrence: FR)
  Receive Date: 20170307
  Receipt Date: 20170420
  Transmission Date: 20170830
  Serious: Yes (Other)
  Sender: FDA-Public Use
  Company Number: FR-ROCHE-1902141

PATIENT
  Age: 39 Year
  Sex: Female

DRUGS (4)
  1. CANNABIS [Concomitant]
     Active Substance: CANNABIS SATIVA SUBSP. INDICA TOP
  2. RIVOTRIL [Suspect]
     Active Substance: CLONAZEPAM
     Indication: PRODUCT USED FOR UNKNOWN INDICATION
     Route: 065
  3. OXOMEMAZINE [Concomitant]
     Active Substance: OXOMEMAZINE
  4. TRAMADOL. [Concomitant]
     Active Substance: TRAMADOL

REACTIONS (2)
  - Amnesia [Recovered/Resolved]
  - Chemical submission [Recovered/Resolved]

NARRATIVE: CASE EVENT DATE: 20160826
